FAERS Safety Report 13032320 (Version 4)
Quarter: 2017Q4

REPORT INFORMATION
  Report Type: Report from Study
  Country: None (occurrence: US)
  Receive Date: 20161215
  Receipt Date: 20171004
  Transmission Date: 20180320
  Serious: Yes (Hospitalization)
  Sender: FDA-Public Use
  Company Number: US-ABBVIE-16K-163-1805160-00

PATIENT
  Age: 70 Year
  Sex: Female

DRUGS (4)
  1. HUMIRA [Suspect]
     Active Substance: ADALIMUMAB
     Route: 058
     Dates: start: 20170113
  2. HUMIRA [Suspect]
     Active Substance: ADALIMUMAB
     Indication: CROHN^S DISEASE
     Dosage: DAY 1
     Route: 058
     Dates: start: 20160902, end: 20160902
  3. HUMIRA [Suspect]
     Active Substance: ADALIMUMAB
     Dosage: DAY 15
     Route: 058
     Dates: start: 20160916, end: 20160916
  4. HUMIRA [Suspect]
     Active Substance: ADALIMUMAB
     Dosage: DAY 29
     Route: 058
     Dates: start: 20160930, end: 20161125

REACTIONS (15)
  - Pancreatic cyst [Unknown]
  - Anxiety [Unknown]
  - Vomiting [Unknown]
  - Splenectomy [Unknown]
  - Faeces discoloured [Unknown]
  - Weight decreased [Unknown]
  - Decreased appetite [Recovering/Resolving]
  - Abdominal pain upper [Recovered/Resolved]
  - Dry skin [Unknown]
  - Flatulence [Recovered/Resolved]
  - Nausea [Unknown]
  - Insomnia [Recovering/Resolving]
  - Pruritus [Unknown]
  - Depressed mood [Unknown]
  - Carbuncle [Unknown]

NARRATIVE: CASE EVENT DATE: 2016
